FAERS Safety Report 4827118-3 (Version None)
Quarter: 2005Q4

REPORT INFORMATION
  Report Type: 
  Country: None (occurrence: None)
  Receive Date: 20051114
  Receipt Date: 20051108
  Transmission Date: 20060501
  Serious: Yes (Death, Life-Threatening, Hospitalization)
  Sender: FDA-Public Use
  Company Number: ES-GLAXOSMITHKLINE-B0400167A

PATIENT
  Age: 73 Year
  Sex: Male

DRUGS (11)
  1. AUGMENTIN '125' [Suspect]
     Indication: PYREXIA
     Dosage: 1G THREE TIMES PER DAY
     Route: 042
     Dates: start: 20050911, end: 20050921
  2. ENOXAPARIN SODIUM [Suspect]
     Indication: ANGINA PECTORIS
     Dosage: 60MG TWICE PER DAY
     Route: 058
     Dates: start: 20050912, end: 20050914
  3. PLAVIX [Suspect]
     Indication: ANGINA PECTORIS
     Dosage: 75MG PER DAY
     Route: 048
     Dates: start: 20050912, end: 20050916
  4. SEGURIL [Suspect]
     Indication: DRUG USE FOR UNKNOWN INDICATION
     Dosage: 20G PER DAY
     Route: 042
     Dates: start: 20050911, end: 20050921
  5. URBASON [Suspect]
     Indication: OBSTRUCTIVE AIRWAYS DISORDER
     Dosage: 20MG THREE TIMES PER DAY
     Route: 042
     Dates: start: 20050911, end: 20050921
  6. ADIRO [Suspect]
     Indication: ANGINA PECTORIS
     Dosage: 100MG PER DAY
     Route: 048
     Dates: start: 20050912, end: 20050916
  7. HEPARIN [Suspect]
     Indication: DRUG USE FOR UNKNOWN INDICATION
     Route: 065
  8. CARDYL [Concomitant]
     Indication: HYPERCHOLESTEROLAEMIA
     Dosage: 20MG SINGLE DOSE
     Route: 048
     Dates: end: 20050921
  9. CESPLON [Concomitant]
     Indication: HYPERTENSION
     Dosage: 12.5MG THREE TIMES PER DAY
     Route: 048
     Dates: end: 20050921
  10. MANIDON [Concomitant]
     Indication: ESSENTIAL HYPERTENSION
     Dosage: 80MG THREE TIMES PER DAY
     Route: 048
     Dates: end: 20050921
  11. NITRODERM [Concomitant]
     Indication: DRUG USE FOR UNKNOWN INDICATION
     Route: 065

REACTIONS (4)
  - CHRONIC OBSTRUCTIVE PULMONARY DISEASE [None]
  - HYPERCALCAEMIA [None]
  - MYOCARDIAL ISCHAEMIA [None]
  - THROMBOCYTOPENIA [None]
